FAERS Safety Report 16982997 (Version 1)
Quarter: 2019Q4

REPORT INFORMATION
  Report Type: Spontaneous
  Country: US (occurrence: US)
  Receive Date: 20190916
  Receipt Date: 20190916
  Transmission Date: 20200122
  Serious: No
  Sender: FDA-Public Use
  Company Number: None

PATIENT
  Age: 46 Year

DRUGS (1)
  1. AMBRISENTAN 10MG TAB (X30) [Suspect]
     Active Substance: AMBRISENTAN
     Route: 048
     Dates: start: 201809

REACTIONS (4)
  - Diarrhoea [None]
  - Flushing [None]
  - Headache [None]
  - Arthralgia [None]

NARRATIVE: CASE EVENT DATE: 20190916
